FAERS Safety Report 13130703 (Version 1)
Quarter: 2017Q1

REPORT INFORMATION
  Report Type: Spontaneous
  Country: FR (occurrence: FR)
  Receive Date: 20170119
  Receipt Date: 20170119
  Transmission Date: 20170428
  Serious: Yes (Hospitalization)
  Sender: FDA-Public Use
  Company Number: FR-PFIZER INC-2017019107

PATIENT
  Age: 93 Year
  Sex: Female

DRUGS (12)
  1. SOLUPRED /00016201/ [Suspect]
     Active Substance: PREDNISOLONE
     Indication: ASTHMA
     Dosage: 60 MG, 1X/DAY
     Route: 048
     Dates: start: 20161218
  2. ALPRAZOLAM. [Concomitant]
     Active Substance: ALPRAZOLAM
  3. ATROVENT [Suspect]
     Active Substance: IPRATROPIUM BROMIDE
     Indication: ASTHMA
     Dosage: 1 DF, 2X/DAY
     Route: 055
     Dates: start: 20161214
  4. FRAGMINE [Suspect]
     Active Substance: DALTEPARIN SODIUM
     Indication: ANTICOAGULANT THERAPY
     Dosage: 5000 IU, 1X/DAY AT 4:00PM
     Route: 058
     Dates: start: 20161215, end: 20161220
  5. CLAMOXYL /00249601/ [Suspect]
     Active Substance: AMOXICILLIN
     Indication: LUNG DISORDER
     Dosage: 500 MG, 3X/DAY
     Route: 048
     Dates: start: 20161215, end: 20161220
  6. VENTOLINE /00139501/ [Suspect]
     Active Substance: ALBUTEROL
     Indication: ASTHMA
     Dosage: 1 DF, 2X/DAY AT 10:00 AM AND 4:00 PM
     Route: 055
     Dates: start: 20161214
  7. FUROSEMIDE. [Concomitant]
     Active Substance: FUROSEMIDE
  8. PARACETAMOL [Concomitant]
     Active Substance: ACETAMINOPHEN
  9. PANTOPRAZOLE [Concomitant]
     Active Substance: PANTOPRAZOLE SODIUM
  10. SERETIDE [Concomitant]
     Active Substance: FLUTICASONE PROPIONATE\SALMETEROL XINAFOATE
  11. BISOPROLOL HEMIFUMARATE [Concomitant]
     Active Substance: BISOPROLOL FUMARATE
  12. RAMIPRIL. [Concomitant]
     Active Substance: RAMIPRIL

REACTIONS (1)
  - Erythema [Recovered/Resolved]

NARRATIVE: CASE EVENT DATE: 20161219
